FAERS Safety Report 12191634 (Version 1)
Quarter: 2016Q1

REPORT INFORMATION
  Report Type: Spontaneous
  Country: DE (occurrence: DE)
  Receive Date: 20160318
  Receipt Date: 20160318
  Transmission Date: 20160526
  Serious: Yes (Death, Hospitalization, Other)
  Sender: FDA-Public Use
  Company Number: DE-BRISTOL-MYERS SQUIBB COMPANY-BMS-2015-083579

PATIENT
  Age: 76 Year
  Sex: Male
  Weight: 91 kg

DRUGS (1)
  1. ELIQUIS [Suspect]
     Active Substance: APIXABAN
     Indication: CEREBROVASCULAR ACCIDENT PROPHYLAXIS
     Dosage: 5 MG, BID
     Route: 065
     Dates: start: 20151116

REACTIONS (3)
  - Atrial thrombosis [Unknown]
  - Sudden death [Fatal]
  - Haematoma [Recovered/Resolved]

NARRATIVE: CASE EVENT DATE: 20151125
